FAERS Safety Report 13022489 (Version 1)
Quarter: 2016Q4

REPORT INFORMATION
  Report Type: Spontaneous
  Country: US (occurrence: US)
  Receive Date: 20161213
  Receipt Date: 20161213
  Transmission Date: 20170207
  Serious: Yes (Death, Disabling, Other)
  Sender: FDA-Public Use
  Company Number: US-PFIZER INC-2016569916

PATIENT
  Age: 58 Year
  Sex: Male

DRUGS (1)
  1. SUTENT [Suspect]
     Active Substance: SUNITINIB MALATE
     Indication: RENAL CELL CARCINOMA
     Dosage: UNK
     Dates: end: 201606

REACTIONS (5)
  - Neoplasm progression [Fatal]
  - Intervertebral disc disorder [Unknown]
  - Aneurysm ruptured [Unknown]
  - Neoplasm [Unknown]
  - Lung disorder [Unknown]
